FAERS Safety Report 9659916 (Version 1)
Quarter: 2013Q4

REPORT INFORMATION
  Report Type: Spontaneous
  Country: US (occurrence: US)
  Receive Date: 20131031
  Receipt Date: 20131031
  Transmission Date: 20140711
  Serious: Yes (Other)
  Sender: FDA-Public Use
  Company Number: US-SUN PHARMACEUTICAL INDUSTRIES LTD-2013SUN04929

PATIENT
  Age: 33 Year
  Sex: Female

DRUGS (1)
  1. BACLOFEN [Suspect]
     Indication: MUSCLE SPASMS
     Dosage: 30 MG, TID
     Route: 048

REACTIONS (3)
  - Premature rupture of membranes [Unknown]
  - Premature delivery [Unknown]
  - Maternal exposure timing unspecified [Unknown]
